FAERS Safety Report 7280749-6 (Version None)
Quarter: 2011Q1

REPORT INFORMATION
  Report Type: 
  Country: None (occurrence: None)
  Receive Date: 20110126
  Receipt Date: 20110126
  Transmission Date: 20110831
  Serious: Yes (Hospitalization)
  Sender: FDA-Public Use
  Company Number: 739858

PATIENT
  Age: 44 Year
  Sex: Male

DRUGS (1)
  1. QUICK-CARE MOISTURIZING GEL WATERLESS ANTIMICROBIAL HAND SANITIZER [Suspect]
     Indication: DRUG ABUSE
     Dates: end: 20110108

REACTIONS (6)
  - INTENTIONAL DRUG MISUSE [None]
  - BLOOD GLUCOSE INCREASED [None]
  - BLOOD MAGNESIUM DECREASED [None]
  - BLOOD BICARBONATE INCREASED [None]
  - BLOOD LACTIC ACID INCREASED [None]
  - BLOOD POTASSIUM DECREASED [None]
